FAERS Safety Report 6696985-3 (Version None)
Quarter: 2010Q2

REPORT INFORMATION
  Report Type: 
  Country: None (occurrence: None)
  Receive Date: 20100426
  Receipt Date: 20100420
  Transmission Date: 20101027
  Serious: Yes (Other)
  Sender: FDA-Public Use
  Company Number: FR-BRISTOL-MYERS SQUIBB COMPANY-15072309

PATIENT
  Age: 57 Year
  Sex: Female

DRUGS (5)
  1. SPRYCEL [Suspect]
     Indication: CHRONIC MYELOID LEUKAEMIA
     Dosage: REDUCEDTO80MG ON30MAR09THENSTOPPEDON11APR09.80MGRESUMED 3MAY-25MAY09THEN STOPPED.50MGRESUMEDON3SEP09
     Route: 048
     Dates: start: 20090306
  2. GLEEVEC [Suspect]
     Indication: CHRONIC MYELOID LEUKAEMIA
     Route: 048
     Dates: start: 20080701, end: 20090301
  3. ARANESP [Suspect]
     Indication: ANAEMIA
     Route: 058
     Dates: start: 20090306, end: 20090525
  4. HYDREA [Concomitant]
  5. ALLOPURINOL [Concomitant]

REACTIONS (4)
  - ANAEMIA [None]
  - BASAL CELL CARCINOMA [None]
  - NEUTROPENIA [None]
  - THROMBOCYTOPENIA [None]
